FAERS Safety Report 9366498 (Version 1)
Quarter: 2013Q2

REPORT INFORMATION
  Report Type: Spontaneous
  Country: US (occurrence: None)
  Receive Date: 20130620
  Receipt Date: 20130620
  Transmission Date: 20140414
  Serious: Yes (Other)
  Sender: FDA-Public Use
  Company Number: 2013PL000089

PATIENT
  Age: 64 Year
  Sex: Female

DRUGS (2)
  1. LOTRONEX [Suspect]
     Indication: IRRITABLE BOWEL SYNDROME
     Dates: start: 2000, end: 201305
  2. LOTRONEX [Suspect]
     Indication: DIARRHOEA
     Dates: start: 2000, end: 201305

REACTIONS (2)
  - Colitis ischaemic [None]
  - Colitis [None]
